FAERS Safety Report 25160445 (Version 1)
Quarter: 2025Q2

REPORT INFORMATION
  Report Type: Spontaneous
  Country: US (occurrence: US)
  Receive Date: 20250404
  Receipt Date: 20250404
  Transmission Date: 20250716
  Serious: Yes (Hospitalization, Other)
  Sender: JOHNSON AND JOHNSON
  Company Number: US-JNJFOC-20250381939

PATIENT

DRUGS (1)
  1. DARZALEX [Suspect]
     Active Substance: DARATUMUMAB
     Indication: Plasma cell myeloma

REACTIONS (6)
  - Dementia [Unknown]
  - Delirium [Unknown]
  - Product intolerance [Unknown]
  - Sleep deficit [Unknown]
  - Osteoporosis [Unknown]
  - Substance-induced psychotic disorder [Unknown]
